FAERS Safety Report 24535580 (Version 1)
Quarter: 2024Q4

REPORT INFORMATION
  Report Type: Spontaneous
  Country: US (occurrence: US)
  Receive Date: 20241022
  Receipt Date: 20241022
  Transmission Date: 20250114
  Serious: Yes (Other)
  Sender: AMGEN
  Company Number: US-AMGEN-USASP2024207617

PATIENT

DRUGS (1)
  1. PREDNISONE [Suspect]
     Active Substance: PREDNISONE
     Indication: Myasthenia gravis
     Dosage: UNK MILLIGRAM, QD
     Route: 065

REACTIONS (3)
  - Myasthenia gravis [Unknown]
  - Myasthenia gravis crisis [Unknown]
  - Off label use [Unknown]
